FAERS Safety Report 16032917 (Version 2)
Quarter: 2019Q2

REPORT INFORMATION
  Report Type: Spontaneous
  Country: DK (occurrence: DK)
  Receive Date: 20190305
  Receipt Date: 20190410
  Transmission Date: 20190711
  Serious: Yes (Life-Threatening, Hospitalization)
  Sender: FDA-Public Use
  Company Number: DK-BEH-2019099923

PATIENT
  Age: 16 Year
  Sex: Male
  Weight: 62 kg

DRUGS (3)
  1. PRIVIGEN [Suspect]
     Active Substance: HUMAN IMMUNOGLOBULIN G
     Indication: ACUTE DISSEMINATED ENCEPHALOMYELITIS
     Dosage: 25 G, UNK; STRENGTH: 20 G/ 200 ML
     Route: 042
     Dates: start: 20190214, end: 20190214
  2. PREDNISOLON                        /00016201/ [Concomitant]
     Active Substance: PREDNISOLONE
     Indication: ACUTE DISSEMINATED ENCEPHALOMYELITIS
     Dosage: DOSE AND STRENGTH UNKNOWN
     Route: 048
     Dates: start: 20190202
  3. ACICLOVIR 1A FARMA [Concomitant]
     Active Substance: ACYCLOVIR
     Indication: ACUTE DISSEMINATED ENCEPHALOMYELITIS
     Dosage: DOSE AND STRENGTH UNKNOWN
     Route: 048
     Dates: start: 20190201

REACTIONS (9)
  - Anaphylactic reaction [Recovering/Resolving]
  - Dehydration [Recovering/Resolving]
  - Hypotension [Recovering/Resolving]
  - Cold sweat [Recovering/Resolving]
  - Endotracheal intubation [Recovering/Resolving]
  - Oxygen saturation decreased [Unknown]
  - Rash [Recovering/Resolving]
  - Irregular breathing [Recovering/Resolving]
  - Respiratory failure [Recovering/Resolving]

NARRATIVE: CASE EVENT DATE: 20190214
